FAERS Safety Report 8839583 (Version 1)
Quarter: 2012Q4

REPORT INFORMATION
  Report Type: 
  Country: US (occurrence: US)
  Receive Date: 20121015
  Receipt Date: 20121015
  Transmission Date: 20130627
  Serious: Yes (Death)
  Sender: FDA-Public Use
  Company Number: PHEH2012US020049

PATIENT
  Age: 86 Year
  Sex: Female

DRUGS (7)
  1. EXELON PATCH [Suspect]
     Route: 062
  2. BABY ASPIRIN [Concomitant]
  3. INSULIN [Concomitant]
  4. VERAPAMIL [Concomitant]
  5. LEVOXYL [Concomitant]
  6. HUMULIN [Concomitant]
  7. CARBIDOPA [Concomitant]

REACTIONS (1)
  - Death [Fatal]
